FAERS Safety Report 8017207-7 (Version None)
Quarter: 2012Q1

REPORT INFORMATION
  Report Type: 
  Country: None (occurrence: None)
  Receive Date: 20120102
  Receipt Date: 20111228
  Transmission Date: 20120608
  Serious: Yes (Other)
  Sender: FDA-Public Use
  Company Number: US-ASTRAZENECA-2009UW21670

PATIENT
  Age: 16869 Day
  Sex: Female

DRUGS (9)
  1. SEROQUEL [Suspect]
     Indication: POST-TRAUMATIC STRESS DISORDER
     Route: 048
     Dates: start: 20040113
  2. NEURONTIN [Concomitant]
     Dates: start: 20050928
  3. RISPERDAL [Concomitant]
     Dates: start: 20050928
  4. SEROQUEL [Suspect]
     Dosage: TWO AT BEDTIME
     Route: 048
     Dates: start: 20060701, end: 20090201
  5. SEROQUEL [Suspect]
     Dosage: TWO AT BEDTIME
     Route: 048
     Dates: start: 20060701, end: 20090201
  6. LITHIUM CARBONATE [Concomitant]
     Dates: start: 20050928
  7. CLONAZEPAM [Concomitant]
     Dates: start: 20050928
  8. SEROQUEL [Suspect]
     Indication: INSOMNIA
     Route: 048
     Dates: start: 20040113
  9. TEMAZEPAM [Concomitant]
     Dates: start: 20050928

REACTIONS (4)
  - DIABETIC NEPHROPATHY [None]
  - WEIGHT INCREASED [None]
  - VISUAL IMPAIRMENT [None]
  - TYPE 2 DIABETES MELLITUS [None]
